FAERS Safety Report 13287611 (Version 4)
Quarter: 2018Q4

REPORT INFORMATION
  Report Type: Report from Study
  Country: TN (occurrence: TN)
  Receive Date: 20170302
  Receipt Date: 20181231
  Transmission Date: 20190204
  Serious: Yes (Hospitalization, Other)
  Sender: FDA-Public Use
  Company Number: PHHY2017TN029387

PATIENT
  Age: 57 Year
  Sex: Female

DRUGS (1)
  1. TASIGNA [Suspect]
     Active Substance: NILOTINIB
     Indication: CHRONIC MYELOID LEUKAEMIA
     Dosage: 400 MG, BID
     Route: 048
     Dates: start: 2011, end: 201809

REACTIONS (11)
  - Aphasia [Not Recovered/Not Resolved]
  - Blood bilirubin increased [Unknown]
  - Gastric haemorrhage [Recovering/Resolving]
  - Haematemesis [Recovering/Resolving]
  - Haemoglobin decreased [Recovering/Resolving]
  - Gastric ulcer [Recovered/Resolved]
  - Venous occlusion [Not Recovered/Not Resolved]
  - Diabetes mellitus [Recovering/Resolving]
  - Ischaemic stroke [Recovering/Resolving]
  - Hypertension [Recovering/Resolving]
  - Coma [Not Recovered/Not Resolved]

NARRATIVE: CASE EVENT DATE: 2015
